FAERS Safety Report 6199062-3 (Version None)
Quarter: 2009Q2

REPORT INFORMATION
  Report Type: 
  Country: None (occurrence: None)
  Receive Date: 20090522
  Receipt Date: 20090512
  Transmission Date: 20091009
  Serious: Yes (Other)
  Sender: FDA-Public Use
  Company Number: FR-BAYER-200921195GPV

PATIENT
  Age: 20 Year
  Sex: Female

DRUGS (1)
  1. YASMIN [Suspect]
     Indication: DRUG USE FOR UNKNOWN INDICATION
     Route: 048
     Dates: start: 20070101

REACTIONS (6)
  - EYE IRRITATION [None]
  - EYELID OEDEMA [None]
  - LACRIMATION INCREASED [None]
  - OROPHARYNGEAL DISCOMFORT [None]
  - RHINITIS ALLERGIC [None]
  - THROAT IRRITATION [None]
